FAERS Safety Report 17648156 (Version 3)
Quarter: 2020Q2

REPORT INFORMATION
  Report Type: Report from Study
  Country: US (occurrence: US)
  Receive Date: 20200409
  Receipt Date: 20200618
  Transmission Date: 20200713
  Serious: No
  Sender: FDA-Public Use
  Company Number: NVSC2020US094304

PATIENT
  Age: 74 Year
  Sex: Male

DRUGS (3)
  1. ENTRESTO [Suspect]
     Active Substance: SACUBITRIL\VALSARTAN
     Dosage: UNK UNK, BID
     Route: 048
     Dates: start: 201911, end: 20200617
  2. ENTRESTO [Suspect]
     Active Substance: SACUBITRIL\VALSARTAN
     Indication: PRODUCT USED FOR UNKNOWN INDICATION
     Dosage: 1 DF, BID
     Route: 048
     Dates: start: 201911
  3. ENTRESTO [Suspect]
     Active Substance: SACUBITRIL\VALSARTAN
     Indication: CARDIAC FAILURE
     Dosage: UNK
     Route: 048
     Dates: start: 201911, end: 20200511

REACTIONS (5)
  - Blood glucose abnormal [Unknown]
  - Weight decreased [Not Recovered/Not Resolved]
  - Product dose omission [Unknown]
  - Hypertension [Recovering/Resolving]
  - Respiratory rate increased [Recovered/Resolved]

NARRATIVE: CASE EVENT DATE: 201909
